FAERS Safety Report 4717186-1 (Version None)
Quarter: 2005Q3

REPORT INFORMATION
  Report Type: 
  Country: None (occurrence: None)
  Receive Date: 20050712
  Receipt Date: 20040706
  Transmission Date: 20060218
  Serious: Yes (Hospitalization, Other)
  Sender: FDA-Public Use
  Company Number: PHEH2004US06552

PATIENT
  Age: 49 Year
  Sex: Female

DRUGS (9)
  1. GLEEVEC [Suspect]
     Indication: CHRONIC MYELOID LEUKAEMIA
     Dosage: SEE IMAGE
     Route: 048
     Dates: start: 20040511, end: 20040601
  2. GLEEVEC [Suspect]
     Indication: CHRONIC MYELOID LEUKAEMIA
     Dosage: SEE IMAGE
     Route: 048
     Dates: start: 20040601, end: 20040609
  3. ZOCOR [Concomitant]
  4. HYDROCHLOROTHIAZIDE [Concomitant]
  5. METFORMIN HCL [Concomitant]
  6. ACYCLOVIR [Concomitant]
  7. TENORMIN [Concomitant]
  8. POLYCITRA (CITRIC ACID, POTASSIUM CITRATE, SODIUM CITRATE) [Concomitant]
  9. EVISTA [Concomitant]

REACTIONS (6)
  - HAEMATOCRIT DECREASED [None]
  - HEADACHE [None]
  - NERVOUS SYSTEM SURGERY [None]
  - PLATELET AGGREGATION ABNORMAL [None]
  - RASH [None]
  - SUBDURAL HAEMORRHAGE [None]
